FAERS Safety Report 6247509-6 (Version None)
Quarter: 2009Q2

REPORT INFORMATION
  Report Type: 
  Country: None (occurrence: None)
  Receive Date: 20090626
  Receipt Date: 20090618
  Transmission Date: 20091009
  Serious: Yes (Other)
  Sender: FDA-Public Use
  Company Number: US-PFIZER INC-2009230590

PATIENT
  Sex: Male
  Weight: 190.48 kg

DRUGS (10)
  1. LIPITOR [Suspect]
     Indication: BLOOD CHOLESTEROL INCREASED
     Dosage: 10 MG, 1X/DAY
     Route: 048
     Dates: start: 20090401, end: 20090409
  2. LASIX [Concomitant]
     Dosage: 60 MG, UNK
  3. PRILOSEC [Concomitant]
     Dosage: 20 MG, 1X/DAY
  4. GLIPIZIDE [Concomitant]
     Dosage: 5 MG, 1X/DAY
  5. VOLTAREN [Concomitant]
     Dosage: 75 MG, 3X/DAY
  6. BENADRYL [Concomitant]
     Dosage: 200 MG, 3X/DAY
  7. LONOX [Concomitant]
     Dosage: UNK
  8. HYDROCODONE [Concomitant]
     Dosage: 500 MG, UNK
  9. GABAPENTIN [Concomitant]
     Dosage: UNK
  10. VITAMINS [Concomitant]
     Dosage: UNK

REACTIONS (6)
  - ABDOMINAL PAIN UPPER [None]
  - DECREASED APPETITE [None]
  - HAEMATOCHEZIA [None]
  - HYPERSENSITIVITY [None]
  - PROCTALGIA [None]
  - RECTAL HAEMORRHAGE [None]
